FAERS Safety Report 5768023-8 (Version None)
Quarter: 2008Q2

REPORT INFORMATION
  Report Type: 
  Country: None (occurrence: None)
  Receive Date: 20080612
  Receipt Date: 20080403
  Transmission Date: 20081010
  Serious: No
  Sender: FDA-Public Use
  Company Number: US-ASTRAZENECA-2008UW06740

PATIENT
  Age: 65 Year
  Sex: Female
  Weight: 67.6 kg

DRUGS (4)
  1. FASLODEX [Suspect]
     Indication: BREAST CANCER STAGE IV
     Route: 030
     Dates: start: 20070101
  2. ZOCOR [Concomitant]
  3. ATENOLOL [Concomitant]
  4. THYROID REPLACEMENT [Concomitant]

REACTIONS (4)
  - ARTHRALGIA [None]
  - FATIGUE [None]
  - RESTLESS LEGS SYNDROME [None]
  - URINE ODOUR ABNORMAL [None]
